FAERS Safety Report 9031359 (Version 1)
Quarter: 2013Q1

REPORT INFORMATION
  Report Type: Spontaneous
  Country: AU (occurrence: AU)
  Receive Date: 20130124
  Receipt Date: 20130124
  Transmission Date: 20140127
  Serious: Yes (Hospitalization)
  Sender: FDA-Public Use
  Company Number: PHHY2013AU006106

PATIENT
  Age: 54 Year
  Sex: Female

DRUGS (1)
  1. HEPARIN [Suspect]
     Indication: PROPHYLAXIS

REACTIONS (9)
  - Left ventricular dysfunction [Recovered/Resolved]
  - Acute myocardial infarction [Recovered/Resolved]
  - Cardiogenic shock [Recovered/Resolved]
  - Hypotension [Recovered/Resolved]
  - Coronary artery thrombosis [Recovered/Resolved]
  - Mitral valve incompetence [Recovered/Resolved]
  - Ventricular tachycardia [Recovered/Resolved]
  - Pulmonary congestion [Recovered/Resolved]
  - Heparin-induced thrombocytopenia [Recovering/Resolving]
